FAERS Safety Report 10234020 (Version 6)
Quarter: 2015Q1

REPORT INFORMATION
  Report Type: Spontaneous
  Country: US (occurrence: US)
  Receive Date: 20140612
  Receipt Date: 20150127
  Transmission Date: 20150720
  Serious: Yes (Hospitalization, Disabling, Other)
  Sender: FDA-Public Use
  Company Number: US-009507513-1406USA006503

PATIENT
  Sex: Female
  Weight: 79.37 kg

DRUGS (5)
  1. FOSAMAX [Suspect]
     Active Substance: ALENDRONATE SODIUM
     Dosage: 5 MG, QD
     Route: 048
  2. VITAMINS (UNSPECIFIED) [Concomitant]
     Active Substance: VITAMINS
     Indication: ROUTINE HEALTH MAINTENANCE
     Dosage: 2800 IU, QD
     Dates: start: 1990
  3. BONIVA [Suspect]
     Active Substance: IBANDRONATE SODIUM
     Indication: OSTEOPENIA
     Dosage: 150 MG, QM
     Route: 048
     Dates: start: 20080317, end: 201208
  4. FOSAMAX [Suspect]
     Active Substance: ALENDRONATE SODIUM
     Indication: OSTEOPENIA
     Dosage: 35 MG, QW
     Route: 048
     Dates: start: 20010207, end: 20030801
  5. FOSAMAX [Suspect]
     Active Substance: ALENDRONATE SODIUM
     Dosage: 70 MG, UNK
     Route: 048
     Dates: start: 20030704, end: 20080317

REACTIONS (57)
  - Anaemia postoperative [Recovering/Resolving]
  - Medical device complication [Recovering/Resolving]
  - Blood blister [Unknown]
  - Anaemia [Unknown]
  - Fall [Unknown]
  - International normalised ratio increased [Unknown]
  - Anticoagulation drug level above therapeutic [Recovered/Resolved]
  - Bone disorder [Unknown]
  - Dental care [Unknown]
  - Erythema nodosum [Unknown]
  - Coagulopathy [Unknown]
  - Osteoarthritis [Unknown]
  - Gastrooesophageal reflux disease [Unknown]
  - Diarrhoea [Unknown]
  - Intramedullary rod insertion [Recovering/Resolving]
  - Acute myocardial infarction [Unknown]
  - Deep vein thrombosis [Unknown]
  - Sleep apnoea syndrome [Unknown]
  - Depression [Unknown]
  - Gastric banding [Unknown]
  - Meniscus injury [Unknown]
  - Spondylolisthesis [Unknown]
  - Pulmonary embolism [Unknown]
  - Pulmonary embolism [Unknown]
  - Spontaneous haematoma [Recovering/Resolving]
  - Pain in extremity [Not Recovered/Not Resolved]
  - Hypothyroidism [Unknown]
  - Lipoma excision [Unknown]
  - Medical device removal [Unknown]
  - Packed red blood cell transfusion [Unknown]
  - Urinary tract infection enterococcal [Unknown]
  - Biopsy soft tissue [Recovering/Resolving]
  - Endodontic procedure [Unknown]
  - Asthma [Unknown]
  - Complex regional pain syndrome [Unknown]
  - Meniscus injury [Unknown]
  - Dry eye [Unknown]
  - Chronic obstructive pulmonary disease [Not Recovered/Not Resolved]
  - Syncope [Unknown]
  - Spinal fusion surgery [Unknown]
  - Low turnover osteopathy [Unknown]
  - Cor pulmonale chronic [Unknown]
  - Femur fracture [Recovering/Resolving]
  - Pathological fracture [Unknown]
  - Procedural pain [Unknown]
  - Deep vein thrombosis [Unknown]
  - Spinal column stenosis [Unknown]
  - Anxiety disorder [Unknown]
  - Arthroscopy [Unknown]
  - Limb asymmetry [Unknown]
  - Increased tendency to bruise [Unknown]
  - Open reduction of fracture [Recovering/Resolving]
  - Leukocytosis [Unknown]
  - Haematoma [Recovered/Resolved]
  - Chondropathy [Unknown]
  - Osteoporosis [Unknown]
  - Constipation [Unknown]

NARRATIVE: CASE EVENT DATE: 200206
